FAERS Safety Report 18652945 (Version 1)
Quarter: 2020Q4

REPORT INFORMATION
  Report Type: Spontaneous
  Country: NL (occurrence: NL)
  Receive Date: 20201223
  Receipt Date: 20201223
  Transmission Date: 20210114
  Serious: Yes (Other)
  Sender: FDA-Public Use
  Company Number: NL-TEVA-2020-NL-1860759

PATIENT
  Sex: Male

DRUGS (6)
  1. PRAVASTATINE TABLET 40MG / BRAND NAME NOT SPECIFIED [Concomitant]
     Dosage: 40 MG (MILLIGRAM),THERAPY START DATE: ASKED BUT UNKNOWN, THERAPY END DATE : ASKED BUT UNKNOWN
  2. INSULINE LISPRO 100E/ML INJVLST / HUMALOG INJVLST 100E/ML FLACON 10ML [Concomitant]
     Dosage: THERAPY START DATE: ASKED BUT UNKNOWN, THERAPY END DATE : ASKED BUT UNKNOWN
  3. FLUTICASON INHALATIEPOEDER 250UG/DO / FLIXOTIDE DISKUS INHPDR 250MCG 6 [Concomitant]
     Dosage: 250 UG / DOSE (MICROGRAMS PER DOSE),THERAPY START DATE: ASKED BUT UNKNOWN, THERAPY END DATE : ASKED
  4. BRINZOLAMIDE OOGDRUPPELS 10MG/ML / BRAND NAME NOT SPECIFIED [Concomitant]
     Dosage: 10 MG/ML (MILLIGRAM PER MILLILITER),THERAPY START DATE: ASKED BUT UNKNOWN, THERAPY END DATE : ASKED
  5. TAMSULOSINE CAPSULE MGA 0,4MG / BRAND NAME NOT SPECIFIED [Suspect]
     Active Substance: TAMSULOSIN HYDROCHLORIDE
     Indication: BENIGN PROSTATIC HYPERPLASIA
     Dosage: .4 MILLIGRAM DAILY; THERAPY END DATE : ASKED BUT UNKNOWN
     Dates: start: 20200205
  6. METFORMINE TABLET   850MG / BRAND NAME NOT SPECIFIED [Concomitant]
     Dosage: 850 MG (MILLIGRAM),THERAPY START DATE: ASKED BUT UNKNOWN, THERAPY END DATE : ASKED BUT UNKNOWN

REACTIONS (2)
  - Retinal detachment [Not Recovered/Not Resolved]
  - Visual impairment [Not Recovered/Not Resolved]
